FAERS Safety Report 4342511-3 (Version None)
Quarter: 2004Q2

REPORT INFORMATION
  Report Type: 
  Country: None (occurrence: None)
  Receive Date: 20040416
  Receipt Date: 20040405
  Transmission Date: 20050107
  Serious: Yes (Life-Threatening)
  Sender: FDA-Public Use
  Company Number: 2004022988

PATIENT
  Age: 23 Year
  Sex: Female

DRUGS (1)
  1. ZOLOFT [Suspect]
     Indication: ANXIETY
     Dosage: 25 MG (DAILY), ORAL
     Route: 048
     Dates: start: 20031202, end: 20031204

REACTIONS (4)
  - DRY MOUTH [None]
  - DYSPNOEA [None]
  - HYPERSENSITIVITY [None]
  - PARAESTHESIA ORAL [None]
